FAERS Safety Report 19720947 (Version 1)
Quarter: 2021Q3

REPORT INFORMATION
  Report Type: Spontaneous
  Country: US (occurrence: US)
  Receive Date: 20210819
  Receipt Date: 20210819
  Transmission Date: 20211014
  Serious: Yes (Other)
  Sender: FDA-Public Use
  Company Number: None

PATIENT
  Age: 51 Year
  Sex: Male
  Weight: 98.55 kg

DRUGS (2)
  1. CASIRIVIMAB. [Suspect]
     Active Substance: CASIRIVIMAB
     Dosage: ?          OTHER FREQUENCY:ONE TIME;?
     Route: 041
     Dates: start: 20210817, end: 20210817
  2. IMDEVIMAB. [Suspect]
     Active Substance: IMDEVIMAB
     Dosage: ?          OTHER FREQUENCY:ONE TIME;?
     Route: 041
     Dates: start: 20210817, end: 20210817

REACTIONS (3)
  - Blood pressure decreased [None]
  - Dizziness [None]
  - Infusion related reaction [None]

NARRATIVE: CASE EVENT DATE: 20210817
